FAERS Safety Report 22588310 (Version 1)
Quarter: 2023Q2

REPORT INFORMATION
  Report Type: Spontaneous
  Country: PT (occurrence: PT)
  Receive Date: 20230612
  Receipt Date: 20230612
  Transmission Date: 20230722
  Serious: Yes (Other)
  Sender: FDA-Public Use
  Company Number: PT-AUROBINDO-AUR-APL-2023-041516

PATIENT
  Age: 81 Year
  Sex: Female

DRUGS (1)
  1. TENOFOVIR [Suspect]
     Active Substance: TENOFOVIR
     Indication: Hepatitis B
     Dosage: UNK
     Route: 065

REACTIONS (1)
  - Fanconi syndrome [Recovered/Resolved]
